FAERS Safety Report 5820324-0 (Version None)
Quarter: 2008Q3

REPORT INFORMATION
  Report Type: 
  Country: None (occurrence: None)
  Receive Date: 20080724
  Receipt Date: 20070626
  Transmission Date: 20090109
  Serious: No
  Sender: FDA-Public Use
  Company Number: A0654592A

PATIENT
  Age: 62 Year
  Sex: Female
  Weight: 115.9 kg

DRUGS (8)
  1. AVANDIA [Suspect]
     Route: 048
     Dates: start: 20060101
  2. ACTOS [Suspect]
     Route: 065
  3. METFORMIN [Concomitant]
  4. INSULIN [Concomitant]
  5. BLOOD PRESSURE MEDICINES [Concomitant]
  6. UROCIT-K [Concomitant]
  7. LIPITOR [Concomitant]
  8. ACIDOPHILUS [Concomitant]

REACTIONS (12)
  - BLOOD PRESSURE INCREASED [None]
  - BONE PAIN [None]
  - EPISTAXIS [None]
  - FEELING ABNORMAL [None]
  - FOOD CRAVING [None]
  - HEART RATE INCREASED [None]
  - HYPERVIGILANCE [None]
  - NEURALGIA [None]
  - PAIN [None]
  - THERAPEUTIC RESPONSE UNEXPECTED [None]
  - VEIN PAIN [None]
  - WEIGHT INCREASED [None]
